FAERS Safety Report 20963164 (Version 1)
Quarter: 2022Q2

REPORT INFORMATION
  Report Type: Spontaneous
  Country: IT (occurrence: IT)
  Receive Date: 20220615
  Receipt Date: 20220615
  Transmission Date: 20220721
  Serious: Yes (Hospitalization, Disabling)
  Sender: FDA-Public Use
  Company Number: IT-DSJP-DSE-2022-120689

PATIENT
  Age: 59 Year
  Sex: Female

DRUGS (1)
  1. EDOXABAN [Suspect]
     Active Substance: EDOXABAN
     Indication: Product used for unknown indication
     Dosage: 60 MG, QD
     Route: 065

REACTIONS (1)
  - Cerebrovascular accident [Unknown]
